FAERS Safety Report 6133872-3 (Version None)
Quarter: 2009Q1

REPORT INFORMATION
  Report Type: 
  Country: None (occurrence: None)
  Receive Date: 20090326
  Receipt Date: 20090316
  Transmission Date: 20090719
  Serious: Yes (Hospitalization, Other)
  Sender: FDA-Public Use
  Company Number: PHHY2009DE10547

PATIENT
  Age: 31 Year
  Sex: Female

DRUGS (5)
  1. EXJADE [Suspect]
     Indication: HAEMOSIDEROSIS
     Dosage: 30 MG/KG BODYWEIGHT
     Route: 048
     Dates: start: 20060101, end: 20080101
  2. EXJADE [Suspect]
     Indication: THALASSAEMIA
     Dosage: 40 MG/KG BODYWEIGHT
     Route: 048
     Dates: start: 20080101, end: 20090307
  3. MARCUMAR [Interacting]
  4. DESFERAL [Concomitant]
     Dosage: UNK
     Dates: start: 20090308
  5. FERRIPROX [Concomitant]
     Dosage: UNK
     Dates: start: 20090308

REACTIONS (5)
  - DIARRHOEA [None]
  - DRUG INEFFECTIVE [None]
  - DRUG INTERACTION [None]
  - INTERNATIONAL NORMALISED RATIO DECREASED [None]
  - PROTHROMBIN TIME SHORTENED [None]
